FAERS Safety Report 14705734 (Version 3)
Quarter: 2019Q2

REPORT INFORMATION
  Report Type: Spontaneous
  Country: US (occurrence: US)
  Receive Date: 20180402
  Receipt Date: 20190404
  Transmission Date: 20190711
  Serious: Yes (Other)
  Sender: FDA-Public Use
  Company Number: US-ASTRAZENECA-2018SE39689

PATIENT
  Sex: Female

DRUGS (29)
  1. PREVACID [Suspect]
     Active Substance: LANSOPRAZOLE
     Route: 065
     Dates: start: 20120728
  2. PROTONIX [Suspect]
     Active Substance: PANTOPRAZOLE SODIUM
     Route: 065
     Dates: start: 201001, end: 201709
  3. BISOPROLOL [Concomitant]
     Active Substance: BISOPROLOL
     Dates: start: 20090706
  4. OXYCODONE [Concomitant]
     Active Substance: OXYCODONE
     Dates: start: 20090706
  5. DIAZEPAM. [Concomitant]
     Active Substance: DIAZEPAM
     Dates: start: 20091011
  6. ROXICET [Concomitant]
     Active Substance: ACETAMINOPHEN\OXYCODONE HYDROCHLORIDE
     Dates: start: 20091020
  7. METFORMIN [Concomitant]
     Active Substance: METFORMIN HYDROCHLORIDE
     Dates: start: 20140813
  8. PRILOSEC OTC [Suspect]
     Active Substance: OMEPRAZOLE MAGNESIUM
     Route: 048
     Dates: start: 201001, end: 201709
  9. MELOXICAM. [Concomitant]
     Active Substance: MELOXICAM
     Dates: start: 20090127
  10. TRAMADOL. [Concomitant]
     Active Substance: TRAMADOL
     Dates: start: 20090127
  11. MINOCYCLINE [Concomitant]
     Active Substance: MINOCYCLINE\MINOCYCLINE HYDROCHLORIDE
     Dates: start: 20140123
  12. NEXIUM [Suspect]
     Active Substance: ESOMEPRAZOLE MAGNESIUM
     Route: 048
     Dates: start: 20100101, end: 20170925
  13. PRILOSEC [Suspect]
     Active Substance: OMEPRAZOLE MAGNESIUM
     Route: 048
     Dates: start: 201001, end: 201709
  14. DEXILANT [Suspect]
     Active Substance: DEXLANSOPRAZOLE
     Route: 065
     Dates: start: 201001, end: 201709
  15. RANITIDINE. [Concomitant]
     Active Substance: RANITIDINE
     Dates: start: 20090912
  16. KETOCONAZOLE. [Concomitant]
     Active Substance: KETOCONAZOLE
     Dates: start: 20140716
  17. SULFAMETHOXAZOLE [Concomitant]
     Active Substance: SULFAMETHOXAZOLE
     Dates: start: 20090103
  18. COMBIVENT [Concomitant]
     Active Substance: ALBUTEROL SULFATE\IPRATROPIUM BROMIDE
     Dates: start: 20090706
  19. PROMETHAZINE [Concomitant]
     Active Substance: PROMETHAZINE\PROMETHAZINE HYDROCHLORIDE
     Dates: start: 20091013
  20. NEXIUM 24HR [Suspect]
     Active Substance: ESOMEPRAZOLE MAGNESIUM
     Route: 048
     Dates: start: 201001, end: 201709
  21. PREVACID 24 HR [Suspect]
     Active Substance: LANSOPRAZOLE
     Route: 065
     Dates: start: 201001, end: 201709
  22. CEPHALEXIN. [Concomitant]
     Active Substance: CEPHALEXIN
     Dates: start: 20081103
  23. ACETAMINOPHEN. [Concomitant]
     Active Substance: ACETAMINOPHEN
     Dates: start: 20090120
  24. CHLORZOXAZONE. [Concomitant]
     Active Substance: CHLORZOXAZONE
     Dates: start: 20090127
  25. PROAIR HFA [Concomitant]
     Active Substance: ALBUTEROL SULFATE
     Dates: start: 20130421
  26. PREVACID [Suspect]
     Active Substance: LANSOPRAZOLE
     Route: 065
     Dates: start: 201001, end: 201709
  27. PREDNISONE. [Concomitant]
     Active Substance: PREDNISONE
     Dates: start: 20090706
  28. RANITIDINE. [Concomitant]
     Active Substance: RANITIDINE
     Dates: start: 20090912
  29. LISINOPRIL. [Concomitant]
     Active Substance: LISINOPRIL
     Dates: start: 20090914

REACTIONS (2)
  - Renal injury [Unknown]
  - Chronic kidney disease [Unknown]
